FAERS Safety Report 10365209 (Version 1)
Quarter: 2014Q3

REPORT INFORMATION
  Report Type: Spontaneous
  Country: US (occurrence: US)
  Receive Date: 20140806
  Receipt Date: 20140806
  Transmission Date: 20150326
  Serious: Yes (Other)
  Sender: FDA-Public Use
  Company Number: US-AMGEN-USASP2014058156

PATIENT
  Sex: Female
  Weight: 58.05 kg

DRUGS (1)
  1. PROLIA [Suspect]
     Active Substance: DENOSUMAB
     Indication: OSTEOPOROSIS POSTMENOPAUSAL
     Dosage: UNK
     Route: 065

REACTIONS (7)
  - Body height decreased [Unknown]
  - Oestrogen deficiency [Unknown]
  - Asthenia [Unknown]
  - Spinal deformity [Unknown]
  - Diabetes mellitus [Unknown]
  - Hypertension [Unknown]
  - Gastrooesophageal reflux disease [Unknown]
